FAERS Safety Report 6030174-0 (Version None)
Quarter: 2009Q1

REPORT INFORMATION
  Report Type: 
  Country: None (occurrence: None)
  Receive Date: 20090105
  Receipt Date: 20090105
  Transmission Date: 20090719
  Serious: Yes (Life-Threatening, Disabling, Other)
  Sender: FDA-Public Use
  Company Number: None

PATIENT
  Age: 49 Year
  Sex: Female
  Weight: 58.9676 kg

DRUGS (2)
  1. LEVAQUIN [Suspect]
     Indication: ENTERITIS INFECTIOUS
     Dosage: 500 MG DAILY ONE TABLET
  2. LEVAQUIN [Suspect]
     Indication: FOOD POISONING
     Dosage: 500 MG DAILY ONE TABLET

REACTIONS (5)
  - ABDOMINAL PAIN UPPER [None]
  - ASTHENIA [None]
  - FOOD POISONING [None]
  - TENDON PAIN [None]
  - VOMITING [None]
